FAERS Safety Report 19615661 (Version 1)
Quarter: 2021Q3

REPORT INFORMATION
  Report Type: Report from Study
  Country: US (occurrence: US)
  Receive Date: 20210727
  Receipt Date: 20210727
  Transmission Date: 20211014
  Serious: Yes (Hospitalization)
  Sender: FDA-Public Use
  Company Number: US-BAYER-2021-167683

PATIENT
  Age: 63 Year
  Sex: Male

DRUGS (2)
  1. STIVARGA [Suspect]
     Active Substance: REGORAFENIB
     Indication: COLON CANCER
     Dosage: 80 MG, QD FOR 21 DAYS THEN 7 DAYS OFF
     Route: 048
  2. STIVARGA [Suspect]
     Active Substance: REGORAFENIB
     Indication: COLON CANCER
     Dosage: 40 MG, BID
     Route: 048
     Dates: start: 20210623

REACTIONS (9)
  - Erythema [Not Recovered/Not Resolved]
  - Blister [Not Recovered/Not Resolved]
  - Product dose omission issue [Recovered/Resolved]
  - Herpes zoster [Not Recovered/Not Resolved]
  - Skin irritation [Not Recovered/Not Resolved]
  - Off label use [None]
  - Diarrhoea [Not Recovered/Not Resolved]
  - Nausea [Not Recovered/Not Resolved]
  - Dyspepsia [None]

NARRATIVE: CASE EVENT DATE: 20210623
